FAERS Safety Report 7792269-0 (Version None)
Quarter: 2011Q3

REPORT INFORMATION
  Report Type: 
  Country: None (occurrence: None)
  Receive Date: 20110929
  Receipt Date: 20110915
  Transmission Date: 20111222
  Serious: Yes (Death)
  Sender: FDA-Public Use
  Company Number: 2011-201

PATIENT
  Age: 39 Year
  Sex: Male
  Weight: 115.9 kg

DRUGS (2)
  1. FAZACLO ODT [Suspect]
     Indication: SCHIZOPHRENIA, PARANOID TYPE
     Dosage: 150 MG,QD, ORAL
     Route: 048
     Dates: start: 20091215, end: 20110508
  2. HALDOL DECANOATE (HALOPERIDOL DECANOATE) [Concomitant]

REACTIONS (6)
  - VENTRICULAR HYPERTROPHY [None]
  - HYPERLIPIDAEMIA [None]
  - SLEEP APNOEA SYNDROME [None]
  - CARDIAC FAILURE CONGESTIVE [None]
  - ANAEMIA [None]
  - CARDIOMYOPATHY [None]
